FAERS Safety Report 5475495-5 (Version None)
Quarter: 2007Q3

REPORT INFORMATION
  Report Type: 
  Country: None (occurrence: None)
  Receive Date: 20070914
  Receipt Date: 20070424
  Transmission Date: 20080115
  Serious: Yes (Death)
  Sender: FDA-Public Use
  Company Number: 07P-163-0365998-00

PATIENT
  Age: 56 Year
  Sex: Female

DRUGS (6)
  1. SYNTHROID [Suspect]
     Indication: HYPOTHYROIDISM
     Dosage: PER ORAL
     Route: 048
  2. MAVIK [Suspect]
     Indication: HYPERTENSION
     Dosage: PER ORAL
     Route: 048
  3. CRESTOR [Concomitant]
  4. GLYPAZIDE [Concomitant]
  5. GLUCOPHAGE [Concomitant]
  6. TOPROLOL [Concomitant]

REACTIONS (1)
  - DEATH [None]
